FAERS Safety Report 9815617 (Version 1)
Quarter: 2014Q1

REPORT INFORMATION
  Report Type: Spontaneous
  Country: PL (occurrence: PL)
  Receive Date: 20140114
  Receipt Date: 20140114
  Transmission Date: 20141002
  Serious: Yes (Life-Threatening, Hospitalization, Other)
  Sender: FDA-Public Use
  Company Number: PL-ELI_LILLY_AND_COMPANY-PL201401003030

PATIENT
  Age: 16 Year
  Sex: Male
  Weight: 65.5 kg

DRUGS (7)
  1. OLANZAPINE [Suspect]
     Indication: PSYCHOTIC DISORDER
     Dosage: 10 MG, QD
     Route: 048
  2. LEVOMEPROMAZINE [Suspect]
     Indication: PSYCHOTIC DISORDER
     Dosage: 25 MG, QD
     Route: 030
  3. LEVOMEPROMAZINE [Suspect]
     Dosage: 37.5 MG, QD
     Route: 030
  4. DEXTROMETHORPHAN [Concomitant]
     Indication: SUBSTANCE USE
  5. PSEUDOEPHEDRINE [Concomitant]
     Indication: SUBSTANCE USE
  6. LORAZEPAM [Concomitant]
     Indication: PSYCHOTIC DISORDER
     Dosage: UNK, PRN
     Route: 065
  7. HALOPERIDOL [Concomitant]
     Indication: AGGRESSION
     Dosage: 2.5 MG, UNK
     Route: 030

REACTIONS (21)
  - Respiratory failure [Unknown]
  - Neuroleptic malignant syndrome [Unknown]
  - Dystonia [Unknown]
  - Mutism [Unknown]
  - Coma [Recovered/Resolved]
  - Grand mal convulsion [Unknown]
  - Delirium [Unknown]
  - Toxicity to various agents [Unknown]
  - Agitation [Unknown]
  - Aggression [Unknown]
  - Insomnia [Unknown]
  - Screaming [Unknown]
  - Extrapyramidal disorder [Unknown]
  - Hallucination, visual [Unknown]
  - Eating disorder symptom [Unknown]
  - Cardiac disorder [Unknown]
  - Weight decreased [Unknown]
  - Dehydration [Unknown]
  - Somnolence [Unknown]
  - Decreased activity [Unknown]
  - Schizophreniform disorder [None]
